FAERS Safety Report 9830541 (Version 2)
Quarter: 2014Q1

REPORT INFORMATION
  Report Type: Report from Study
  Country: AU (occurrence: AU)
  Receive Date: 20140120
  Receipt Date: 20140130
  Transmission Date: 20141002
  Serious: Yes (Death, Hospitalization)
  Sender: FDA-Public Use
  Company Number: AU-BRISTOL-MYERS SQUIBB COMPANY-19989656

PATIENT
  Age: 80 Year
  Sex: Female

DRUGS (13)
  1. ORENCIA [Suspect]
     Indication: RHEUMATOID ARTHRITIS
     Route: 042
     Dates: start: 20120211, end: 20131202
  2. PREDNISOLONE [Concomitant]
  3. THYROXINE [Concomitant]
  4. LOSEC [Concomitant]
  5. VITAMIN D [Concomitant]
  6. MEGAFOL [Concomitant]
  7. PANADOL [Concomitant]
  8. NORSPAN [Concomitant]
     Dosage: NORSPAN PATCH
  9. MACRODANTIN [Concomitant]
  10. OLMETEC PLUS [Concomitant]
  11. PROTOSTAT [Concomitant]
  12. CELLUFRESH [Concomitant]
     Dosage: EYE DROPS
  13. CELLUVISC [Concomitant]
     Dosage: EYE DROPS

REACTIONS (2)
  - Death [Fatal]
  - Hernia [Unknown]
